FAERS Safety Report 4416816-1 (Version None)
Quarter: 2004Q3

REPORT INFORMATION
  Report Type: 
  Country: None (occurrence: None)
  Receive Date: 20040802
  Receipt Date: 20040726
  Transmission Date: 20050211
  Serious: Yes (Hospitalization)
  Sender: FDA-Public Use
  Company Number: 2004UW12039

PATIENT
  Age: 59 Year
  Sex: Female
  Weight: 77.5651 kg

DRUGS (5)
  1. IRESSA [Suspect]
     Indication: NON-SMALL CELL LUNG CANCER
     Dosage: 250 MG DAILY PO
     Route: 048
     Dates: start: 20040201, end: 20040609
  2. LASIX [Concomitant]
  3. DIGOXIN [Concomitant]
  4. XANAX [Concomitant]
  5. MAGNESIUM OXIDE [Concomitant]

REACTIONS (10)
  - ASCITES [None]
  - CARDIAC FAILURE CONGESTIVE [None]
  - DRUG ERUPTION [None]
  - INFECTION [None]
  - LUNG ADENOCARCINOMA STAGE IV [None]
  - PAIN EXACERBATED [None]
  - PLEURAL EFFUSION [None]
  - RASH PUSTULAR [None]
  - REFUSAL OF TREATMENT BY PATIENT [None]
  - STAPHYLOCOCCAL INFECTION [None]
